FAERS Safety Report 26131457 (Version 1)
Quarter: 2025Q4

REPORT INFORMATION
  Report Type: Report from Study
  Country: US (occurrence: US)
  Receive Date: 20251208
  Receipt Date: 20251208
  Transmission Date: 20260118
  Serious: Yes (Other)
  Sender: NOVARTIS
  Company Number: US-002147023-NVSC2025US187195

PATIENT
  Age: 65 Year
  Sex: Female
  Weight: 63.5 kg

DRUGS (1)
  1. INCLISIRAN [Suspect]
     Active Substance: INCLISIRAN
     Indication: Type IIa hyperlipidaemia
     Dosage: 284 MG, OTHER (1 INJECTION) (1.5 ML)
     Route: 058
     Dates: start: 20250929

REACTIONS (1)
  - Skin reaction [Not Recovered/Not Resolved]

NARRATIVE: CASE EVENT DATE: 20250929
